FAERS Safety Report 12407128 (Version 3)
Quarter: 2016Q3

REPORT INFORMATION
  Report Type: Spontaneous
  Country: US (occurrence: US)
  Receive Date: 20160526
  Receipt Date: 20160921
  Transmission Date: 20161109
  Serious: Yes (Other)
  Sender: FDA-Public Use
  Company Number: US-JNJFOC-20160518504

PATIENT

DRUGS (3)
  1. SIMEPREVIR [Suspect]
     Active Substance: SIMEPREVIR
     Indication: CHRONIC HEPATITIS C
     Route: 048
  2. TACROLIMUS. [Concomitant]
     Active Substance: TACROLIMUS
     Indication: IMMUNOSUPPRESSION
     Route: 065
  3. SOFOSBUVIR [Suspect]
     Active Substance: SOFOSBUVIR
     Indication: CHRONIC HEPATITIS C
     Route: 065

REACTIONS (15)
  - Headache [Unknown]
  - Adverse reaction [Unknown]
  - Fatigue [Unknown]
  - Dyspnoea [Unknown]
  - Rash [Unknown]
  - Remission not achieved [Unknown]
  - Off label use [Unknown]
  - Arthralgia [Unknown]
  - Drug prescribing error [Unknown]
  - Insomnia [Unknown]
  - Myalgia [Unknown]
  - Pruritus [Unknown]
  - Photosensitivity reaction [Unknown]
  - Decreased appetite [Unknown]
  - Nausea [Unknown]
